FAERS Safety Report 20695091 (Version 1)
Quarter: 2022Q2

REPORT INFORMATION
  Report Type: Report from Study
  Country: CA (occurrence: CA)
  Receive Date: 20220411
  Receipt Date: 20220411
  Transmission Date: 20220721
  Serious: Yes (Hospitalization, Other)
  Sender: FDA-Public Use
  Company Number: None

PATIENT
  Age: 70 Year
  Sex: Male

DRUGS (3)
  1. MYCOPHENOLATE MOFETIL [Suspect]
     Active Substance: MYCOPHENOLATE MOFETIL
     Indication: Product used for unknown indication
     Dosage: 2 EVERY 1 DAYS
  2. RISEDRONATE SODIUM [Suspect]
     Active Substance: RISEDRONATE SODIUM
     Indication: Product used for unknown indication
  3. RITUXIMAB [Suspect]
     Active Substance: RITUXIMAB
     Indication: Obstructive pancreatitis
     Route: 042

REACTIONS (8)
  - Diarrhoea [Unknown]
  - Blood bilirubin increased [Unknown]
  - Gastritis [Unknown]
  - Hepatic encephalopathy [Unknown]
  - Immunoglobulin G4 related disease [Unknown]
  - Nausea [Unknown]
  - Obstructive pancreatitis [Unknown]
  - Soft tissue disorder [Unknown]
